FAERS Safety Report 10277148 (Version 2)
Quarter: 2014Q3

REPORT INFORMATION
  Report Type: Spontaneous
  Country: US (occurrence: US)
  Receive Date: 20140703
  Receipt Date: 20140817
  Transmission Date: 20150326
  Serious: No
  Sender: FDA-Public Use
  Company Number: US-TEVA-491080USA

PATIENT
  Age: 18 Year
  Sex: Female
  Weight: 78.54 kg

DRUGS (7)
  1. ENLYTE [Concomitant]
     Active Substance: CALCIUM ASCORBATE\CALCIUM THREONATE\COBALAMIN\COCARBOXYLASE\FERROUS GLUCONATE\FISH OIL\FLAVIN ADENINE DINUCLEOTIDE\FOLIC ACID\LEUCOVORIN CALCIUM\LEVOMEFOLIC ACID\METHYLCOBALAMIN\NADIDE\PYRIDOXAL 5-PHOSPHATE
  2. NUVIGIL [Suspect]
     Active Substance: ARMODAFINIL
     Indication: NARCOLEPSY
     Dosage: 200 MILLIGRAM DAILY;
     Dates: start: 20140617
  3. LAMICTAL [Concomitant]
     Active Substance: LAMOTRIGINE
     Indication: CONVULSION
  4. NUVIGIL [Suspect]
     Active Substance: ARMODAFINIL
     Indication: SLEEP APNOEA SYNDROME
     Dates: start: 20140622
  5. CAMILA [Concomitant]
     Active Substance: NORETHINDRONE
  6. NUVIGIL [Suspect]
     Active Substance: ARMODAFINIL
     Indication: SOMNOLENCE
     Dates: start: 20140623, end: 20140623
  7. SETEZIMA [Concomitant]

REACTIONS (4)
  - Diarrhoea [Recovered/Resolved]
  - Dehydration [Recovered/Resolved]
  - Vomiting [Recovered/Resolved]
  - Nausea [Recovered/Resolved]

NARRATIVE: CASE EVENT DATE: 20140617
